FAERS Safety Report 17889744 (Version 1)
Quarter: 2020Q2

REPORT INFORMATION
  Report Type: Report from Study
  Country: EG (occurrence: EG)
  Receive Date: 20200612
  Receipt Date: 20200612
  Transmission Date: 20200714
  Serious: Yes (Other)
  Sender: FDA-Public Use
  Company Number: NVSC2020EG162753

PATIENT
  Age: 4 Year
  Sex: Male
  Weight: 14 kg

DRUGS (1)
  1. OMNITROPE [Suspect]
     Active Substance: SOMATROPIN
     Indication: GROWTH HORMONE DEFICIENCY
     Dosage: UNK MG, QD
     Route: 058
     Dates: start: 201806, end: 202004

REACTIONS (2)
  - Concomitant disease aggravated [Not Recovered/Not Resolved]
  - Congenital heart valve disorder [Not Recovered/Not Resolved]

NARRATIVE: CASE EVENT DATE: 202002
